FAERS Safety Report 11749846 (Version 4)
Quarter: 2016Q2

REPORT INFORMATION
  Report Type: Report from Study
  Country: JP (occurrence: JP)
  Receive Date: 20151118
  Receipt Date: 20160412
  Transmission Date: 20160815
  Serious: Yes (Life-Threatening, Hospitalization)
  Sender: FDA-Public Use
  Company Number: JP-EISAI MEDICAL RESEARCH-EC-2015-011942

PATIENT
  Age: 76 Year
  Sex: Female
  Weight: 57 kg

DRUGS (12)
  1. OXYCONTIN [Concomitant]
     Active Substance: OXYCODONE HYDROCHLORIDE
     Indication: CANCER PAIN
  2. ASPARA-CA [Concomitant]
     Active Substance: CALCIUM ASPARTATE
  3. LENVIMA [Suspect]
     Active Substance: LENVATINIB
     Route: 048
     Dates: start: 20151001, end: 20151005
  4. LEVOTHYROXINE SODIUM. [Concomitant]
     Active Substance: LEVOTHYROXINE SODIUM
  5. LENVIMA [Suspect]
     Active Substance: LENVATINIB
     Indication: PAPILLARY THYROID CANCER
     Route: 048
     Dates: start: 20150630, end: 20150630
  6. LENVIMA [Suspect]
     Active Substance: LENVATINIB
     Route: 048
     Dates: start: 20151006, end: 20151012
  7. AMLODIPINE [Concomitant]
     Active Substance: AMLODIPINE BESYLATE
  8. ZOLPIDEM TARTRATE. [Concomitant]
     Active Substance: ZOLPIDEM TARTRATE
  9. LOXOPROFEN [Concomitant]
     Active Substance: LOXOPROFEN
  10. LENVIMA [Suspect]
     Active Substance: LENVATINIB
     Route: 048
     Dates: start: 20150703, end: 20150709
  11. REBAMIPIDE [Concomitant]
     Active Substance: REBAMIPIDE
  12. OLMESARTAN MEDOXOMIL. [Concomitant]
     Active Substance: OLMESARTAN MEDOXOMIL

REACTIONS (4)
  - Suicide attempt [Not Recovered/Not Resolved]
  - Inappropriate antidiuretic hormone secretion [Recovered/Resolved]
  - Hyponatraemia [Recovering/Resolving]
  - Malaise [Recovering/Resolving]

NARRATIVE: CASE EVENT DATE: 20150711
